FAERS Safety Report 17816054 (Version 1)
Quarter: 2020Q2

REPORT INFORMATION
  Report Type: Spontaneous
  Country: CZ (occurrence: CZ)
  Receive Date: 20200522
  Receipt Date: 20200522
  Transmission Date: 20200714
  Serious: Yes (Other)
  Sender: FDA-Public Use
  Company Number: CZ-ACCORD-182865

PATIENT
  Age: 62 Year
  Sex: Male

DRUGS (3)
  1. DOCETAXEL. [Suspect]
     Active Substance: DOCETAXEL
     Indication: PROSTATE CANCER
     Dosage: THREE-WEEK CYCLE
     Dates: start: 2015, end: 201512
  2. PREDNISONE. [Suspect]
     Active Substance: PREDNISONE
     Indication: PROSTATE CANCER
     Dates: start: 2015, end: 201512
  3. XTANDI [Concomitant]
     Active Substance: ENZALUTAMIDE
     Indication: PROPHYLAXIS

REACTIONS (2)
  - Mental impairment [Unknown]
  - Physical disability [Unknown]

NARRATIVE: CASE EVENT DATE: 2015
